FAERS Safety Report 14825638 (Version 1)
Quarter: 2018Q2

REPORT INFORMATION
  Report Type: Spontaneous
  Country: FR (occurrence: FR)
  Receive Date: 20180430
  Receipt Date: 20180430
  Transmission Date: 20180711
  Serious: Yes (Other)
  Sender: FDA-Public Use
  Company Number: FR-MERCK KGAA-2046791

PATIENT
  Age: 46 Year

DRUGS (1)
  1. NOVOTHYROX [Suspect]
     Active Substance: LEVOTHYROXINE SODIUM
     Indication: POST PROCEDURAL HYPOTHYROIDISM

REACTIONS (18)
  - Angina pectoris [Recovering/Resolving]
  - Sensory disturbance [None]
  - Mood altered [None]
  - Asthenia [Recovering/Resolving]
  - Blood thyroid stimulating hormone decreased [None]
  - Migraine [None]
  - Tachycardia [None]
  - Palpitations [Recovering/Resolving]
  - Disturbance in attention [None]
  - Poor quality sleep [None]
  - Fatigue [None]
  - Depression [None]
  - Middle insomnia [None]
  - Impaired work ability [None]
  - Irritability [None]
  - Alopecia [None]
  - Impaired driving ability [None]
  - Somnolence [None]

NARRATIVE: CASE EVENT DATE: 20170915
